FAERS Safety Report 16303419 (Version 3)
Quarter: 2019Q3

REPORT INFORMATION
  Report Type: Spontaneous
  Country: FR (occurrence: FR)
  Receive Date: 20190513
  Receipt Date: 20190726
  Transmission Date: 20191004
  Serious: Yes (Hospitalization)
  Sender: FDA-Public Use
  Company Number: FR-SUN PHARMACEUTICAL INDUSTRIES LTD-2019RR-207519

PATIENT
  Age: 67 Year
  Sex: Male

DRUGS (4)
  1. OXALIPLATIN. [Suspect]
     Active Substance: OXALIPLATIN
     Indication: ADENOCARCINOMA PANCREAS
     Dosage: 145 MG SELON LE CYCLE
     Route: 041
     Dates: start: 20190405, end: 20190405
  2. IRINOTECAN [Suspect]
     Active Substance: IRINOTECAN
     Indication: ADENOCARCINOMA PANCREAS
     Dosage: 260 MG SELON LE CYCLE
     Route: 041
     Dates: start: 20190405, end: 20190405
  3. FLUOROURACIL. [Suspect]
     Active Substance: FLUOROURACIL
     Indication: ADENOCARCINOMA PANCREAS
     Dosage: 8300 MG SELON LE CYCLE ; CYCLICAL
     Route: 041
     Dates: start: 20190405, end: 20190407
  4. ZOPHREN 8 MG/4 ML, SOLUTION INJECTABLE EN SERINGUE PRE-REMPLIE [Suspect]
     Active Substance: ONDANSETRON
     Indication: NAUSEA
     Dosage: 24 MILLIGRAM, DAILY
     Route: 042
     Dates: start: 20190405, end: 20190409

REACTIONS (7)
  - Aphasia [Recovering/Resolving]
  - Dyskinesia [Recovering/Resolving]
  - Decreased eye contact [Recovering/Resolving]
  - Leukoencephalopathy [Recovering/Resolving]
  - Petit mal epilepsy [Recovering/Resolving]
  - Musculoskeletal stiffness [Recovering/Resolving]
  - Product prescribing error [Recovered/Resolved]

NARRATIVE: CASE EVENT DATE: 20190405
